FAERS Safety Report 8281031-0 (Version None)
Quarter: 2012Q2

REPORT INFORMATION
  Report Type: 
  Country: None (occurrence: None)
  Receive Date: 20120412
  Receipt Date: 20120403
  Transmission Date: 20120825
  Serious: Yes (Other)
  Sender: FDA-Public Use
  Company Number: DE-ABBOTT-12P-062-0924752-00

PATIENT
  Age: 66 Year
  Sex: Male

DRUGS (4)
  1. TESTOSTERONE [Suspect]
     Indication: PRODUCT USED FOR UNKNOWN INDICATION
     Route: 062
     Dates: start: 20120321, end: 20120327
  2. TESTOSTERONE [Suspect]
     Route: 062
     Dates: start: 20120328
  3. INSULIN [Concomitant]
     Indication: TYPE 1 DIABETES MELLITUS
  4. ENALAPRIL MALEATE [Concomitant]
     Indication: EYE DISORDER

REACTIONS (2)
  - HYPOGLYCAEMIA [None]
  - HYPOGLYCAEMIC UNCONSCIOUSNESS [None]
